FAERS Safety Report 4723238-2 (Version None)
Quarter: 2005Q3

REPORT INFORMATION
  Report Type: 
  Country: None (occurrence: None)
  Receive Date: 20050719
  Receipt Date: 20040824
  Transmission Date: 20060218
  Serious: Yes (Other)
  Sender: FDA-Public Use
  Company Number: 203489

PATIENT
  Age: 43 Year
  Sex: Female
  Weight: 63.5036 kg

DRUGS (3)
  1. AVONEX [Suspect]
     Indication: MULTIPLE SCLEROSIS
     Dosage: 30 UG; QW; IM
     Route: 030
     Dates: start: 19990101, end: 20030101
  2. AVONEX [Suspect]
     Indication: MULTIPLE SCLEROSIS
     Dosage: 30 UG; QW; IM
     Route: 030
     Dates: start: 20030101
  3. DILANTIN [Concomitant]

REACTIONS (8)
  - CONCUSSION [None]
  - DEPRESSION [None]
  - FALL [None]
  - MULTIPLE SCLEROSIS RELAPSE [None]
  - SIMPLE PARTIAL SEIZURES [None]
  - SKIN LACERATION [None]
  - STRESS [None]
  - SUICIDAL IDEATION [None]
